FAERS Safety Report 14325804 (Version 6)
Quarter: 2018Q2

REPORT INFORMATION
  Report Type: Report from Study
  Country: US (occurrence: US)
  Receive Date: 20171226
  Receipt Date: 20180611
  Transmission Date: 20180711
  Serious: Yes (Hospitalization)
  Sender: FDA-Public Use
  Company Number: US-ACTELION-A-US2017-164517

PATIENT
  Age: 24 Year
  Sex: Female
  Weight: 73.16 kg

DRUGS (4)
  1. VELETRI [Suspect]
     Active Substance: EPOPROSTENOL
     Indication: PULMONARY ARTERIAL HYPERTENSION
     Dosage: 20 NG/KG, PER MIN
     Route: 042
  2. VELETRI [Suspect]
     Active Substance: EPOPROSTENOL
     Dosage: 28 NG/KG, PER MIN
     Route: 042
  3. SILDENAFIL. [Concomitant]
     Active Substance: SILDENAFIL
  4. OPSUMIT [Suspect]
     Active Substance: MACITENTAN
     Indication: PULMONARY ARTERIAL HYPERTENSION
     Dosage: 10 MG, QD
     Route: 048
     Dates: start: 20170314

REACTIONS (14)
  - Vomiting [Unknown]
  - Blood glucose decreased [Unknown]
  - Headache [Unknown]
  - Dyspnoea exertional [Unknown]
  - Influenza [Recovered/Resolved]
  - Palpitations [Unknown]
  - Drug dose omission [Recovered/Resolved]
  - Treatment noncompliance [Unknown]
  - Unresponsive to stimuli [Unknown]
  - Critical illness [Unknown]
  - Nausea [Unknown]
  - Diarrhoea [Unknown]
  - Hyperthyroidism [Unknown]
  - Back pain [Unknown]

NARRATIVE: CASE EVENT DATE: 20171208
